FAERS Safety Report 10210948 (Version 1)
Quarter: 2014Q2

REPORT INFORMATION
  Report Type: Spontaneous
  Country: BE (occurrence: BE)
  Receive Date: 20140602
  Receipt Date: 20140602
  Transmission Date: 20141212
  Serious: Yes (Hospitalization)
  Sender: FDA-Public Use
  Company Number: BE-DSJP-DSE-2014-110021

PATIENT
  Sex: 0

DRUGS (3)
  1. BELSAR 40 MG [Suspect]
     Indication: HYPERTENSION
     Dosage: 40 MG, QD
     Route: 048
     Dates: start: 20120303, end: 20140303
  2. TOTALIP [Concomitant]
     Indication: PRODUCT USED FOR UNKNOWN INDICATION
  3. SINTROM [Concomitant]
     Indication: PRODUCT USED FOR UNKNOWN INDICATION

REACTIONS (5)
  - Weight decreased [Recovered/Resolved]
  - Diarrhoea [Recovered/Resolved]
  - General physical health deterioration [Recovered/Resolved]
  - Intestinal villi atrophy [None]
  - Steatorrhoea [None]
